FAERS Safety Report 19995300 (Version 1)
Quarter: 2021Q4

REPORT INFORMATION
  Report Type: Spontaneous
  Country: US (occurrence: US)
  Receive Date: 20211024
  Receipt Date: 20211024
  Transmission Date: 20220303
  Serious: Yes (Death)
  Sender: FDA-Public Use
  Company Number: None

PATIENT
  Age: 61 Year
  Sex: Male
  Weight: 72.12 kg

DRUGS (6)
  1. LORAZEPAM [Suspect]
     Active Substance: LORAZEPAM
     Indication: Stress
     Dosage: ?          QUANTITY:1/2 TO 1 PILL;
     Route: 048
     Dates: start: 20210909, end: 20210914
  2. LORAZEPAM [Suspect]
     Active Substance: LORAZEPAM
     Indication: Heart rate increased
  3. Centrum Multi-vitamin [Concomitant]
  4. CALTRATE [Concomitant]
     Active Substance: CALCIUM CARBONATE
  5. ASPIRIN [Concomitant]
     Active Substance: ASPIRIN
  6. PROPRANOLOL HYDROCHLORIDE [Suspect]
     Active Substance: PROPRANOLOL HYDROCHLORIDE

REACTIONS (1)
  - Completed suicide [None]

NARRATIVE: CASE EVENT DATE: 20210914
